FAERS Safety Report 7599522-4 (Version None)
Quarter: 2011Q3

REPORT INFORMATION
  Report Type: 
  Country: None (occurrence: None)
  Receive Date: 20110711
  Receipt Date: 20090316
  Transmission Date: 20111222
  Serious: Yes (Other)
  Sender: FDA-Public Use
  Company Number: US-BAYER-200915566NA

PATIENT
  Age: 71 Year
  Sex: Male
  Weight: 99.773 kg

DRUGS (12)
  1. ALLOPURINOL [Concomitant]
     Dosage: 300 MG, LONGTERM
     Route: 048
  2. INSULIN [Concomitant]
     Dosage: LONGTERM
     Route: 058
  3. TRASYLOL [Suspect]
     Indication: CORONARY ARTERY BYPASS
     Dosage: 200 ML LOADING DOSE FOLLOWED BY 50 ML/HR INFUSION.
     Route: 042
     Dates: start: 20031224, end: 20031224
  4. ENALAPRIL MALEATE [Concomitant]
     Dosage: 40 MG, LONGTERM
     Route: 048
  5. ACETYLSALICYLIC ACID SRT [Concomitant]
     Dosage: LONGTERM
     Route: 048
  6. HEPARIN [Concomitant]
     Dosage: 35000/10000 UNITS
     Route: 042
     Dates: start: 20031224
  7. VANCOMYCIN [Concomitant]
     Dosage: 1 G, UNK
     Route: 042
     Dates: start: 20031224
  8. METOPROLOL TARTRATE [Concomitant]
     Dosage: 100 MG, BID, LONGTERM
     Route: 048
  9. LASIX [Concomitant]
     Dosage: 40 MG, LONGTERM
     Route: 048
  10. BENADRYL [Concomitant]
     Dosage: 50 MG,
     Route: 042
     Dates: start: 20031224
  11. NIFEDIPINE [Concomitant]
     Dosage: 60 MG, LONGTERM
     Route: 048
  12. PANCURONIUM [Concomitant]
     Dosage: 10 MG, UNK
     Route: 042
     Dates: start: 20031224

REACTIONS (9)
  - UNEVALUABLE EVENT [None]
  - RENAL FAILURE [None]
  - INJURY [None]
  - ANXIETY [None]
  - FEAR [None]
  - ADVERSE EVENT [None]
  - ANHEDONIA [None]
  - PAIN [None]
  - DEPRESSION [None]
